FAERS Safety Report 8417222 (Version 3)
Quarter: 2013Q1

REPORT INFORMATION
  Report Type: Report from Study
  Country: KR (occurrence: KR)
  Receive Date: 20120220
  Receipt Date: 20130130
  Transmission Date: 20140127
  Serious: Yes (Other)
  Sender: FDA-Public Use
  Company Number: KR-BAYER-2011-068416

PATIENT
  Age: 48 Year
  Sex: 0
  Weight: 62 kg

DRUGS (6)
  1. ALKYLOXAN [Concomitant]
     Indication: NEOPLASM MALIGNANT
  2. LYRICA [Concomitant]
     Indication: NEURALGIA
  3. INTERFERON BETA - 1B [Suspect]
     Indication: MULTIPLE SCLEROSIS
     Dosage: UNK
     Route: 058
     Dates: start: 20070418
  4. CORTICOSTEROIDS [Concomitant]
  5. TEGRETOL [Concomitant]
     Indication: CONVULSION
  6. TEGRETOL [Concomitant]
     Indication: PAIN

REACTIONS (3)
  - Injection site abscess [Not Recovered/Not Resolved]
  - Multiple sclerosis relapse [None]
  - Injection site abscess [Not Recovered/Not Resolved]
